FAERS Safety Report 5678192-6 (Version None)
Quarter: 2008Q1

REPORT INFORMATION
  Report Type: 
  Country: None (occurrence: None)
  Receive Date: 20080325
  Receipt Date: 20080318
  Transmission Date: 20080703
  Serious: Yes (Hospitalization, Disabling, Other)
  Sender: FDA-Public Use
  Company Number: US-ELI_LILLY_AND_COMPANY-US200803004345

PATIENT
  Sex: Male

DRUGS (1)
  1. ZYPREXA [Suspect]
     Indication: ANXIETY
     Dosage: 3 D/F, DAILY (1/D)
     Dates: start: 19980101, end: 20010101

REACTIONS (8)
  - ACTIVITIES OF DAILY LIVING IMPAIRED [None]
  - BLINDNESS [None]
  - COMA [None]
  - CONFUSIONAL STATE [None]
  - DIABETES MELLITUS [None]
  - HYPERGLYCAEMIA [None]
  - LIVER DISORDER [None]
  - PANCREATIC DISORDER [None]
